FAERS Safety Report 8282923-9 (Version None)
Quarter: 2012Q2

REPORT INFORMATION
  Report Type: 
  Country: None (occurrence: None)
  Receive Date: 20120413
  Receipt Date: 20120330
  Transmission Date: 20120825
  Serious: Yes (Other)
  Sender: FDA-Public Use
  Company Number: CH-ROCHE-1048866

PATIENT
  Sex: Male
  Weight: 80 kg

DRUGS (1)
  1. ZELBORAF [Suspect]
     Indication: METASTATIC MALIGNANT MELANOMA
     Route: 048
     Dates: start: 20110611, end: 20111211

REACTIONS (1)
  - TRANSIENT ACANTHOLYTIC DERMATOSIS [None]
